FAERS Safety Report 21974823 (Version 1)
Quarter: 2023Q1

REPORT INFORMATION
  Report Type: Report from Study
  Country: US (occurrence: US)
  Receive Date: 20230209
  Receipt Date: 20230209
  Transmission Date: 20230418
  Serious: Yes (Death)
  Sender: FDA-Public Use
  Company Number: US-TEVA-2023-US-2853982

PATIENT

DRUGS (2)
  1. CISPLATIN [Suspect]
     Active Substance: CISPLATIN
     Indication: Triple negative breast cancer
     Route: 065
  2. VELIPARIB [Suspect]
     Active Substance: VELIPARIB
     Indication: Triple negative breast cancer
     Route: 065

REACTIONS (1)
  - Sepsis [Fatal]
